FAERS Safety Report 7269958-X (Version None)
Quarter: 2011Q1

REPORT INFORMATION
  Report Type: 
  Country: None (occurrence: None)
  Receive Date: 20110125
  Receipt Date: 20110110
  Transmission Date: 20110831
  Serious: Yes (Hospitalization)
  Sender: FDA-Public Use
  Company Number: 2011000309

PATIENT
  Age: 69 Year
  Sex: Male

DRUGS (9)
  1. DIGITOXIN INJ [Concomitant]
  2. ERLOTINIB HYDROCHLORIDE [Suspect]
     Indication: PANCREATIC CARCINOMA
     Dosage: 100 MG, QD, ORAL
     Route: 048
     Dates: end: 20110102
  3. INNOHEP [Concomitant]
  4. GEMCITABINE [Suspect]
     Indication: PANCREATIC CARCINOMA
     Dosage: 1570 MG, QD, ORAL
     Route: 048
     Dates: end: 20101220
  5. THEOPHYLLINE [Concomitant]
  6. PANTOPRAZOL [Concomitant]
  7. ATACAND [Concomitant]
  8. METOPROLOL SUCCINATE [Concomitant]
  9. INSPRA [Concomitant]

REACTIONS (2)
  - ULCERATIVE KERATITIS [None]
  - CORNEAL TRANSPLANT [None]
